FAERS Safety Report 22299509 (Version 1)
Quarter: 2023Q2

REPORT INFORMATION
  Report Type: Spontaneous
  Country: US (occurrence: None)
  Receive Date: 20230508
  Receipt Date: 20230508
  Transmission Date: 20230721
  Serious: No
  Sender: FDA-Public Use
  Company Number: None

PATIENT
  Sex: Male
  Weight: 24.75 kg

DRUGS (1)
  1. LEVOFLOXACIN [Suspect]
     Active Substance: LEVOFLOXACIN
     Indication: Illness
     Dosage: OTHER QUANTITY : 100 ML;?FREQUENCY : DAILY;?
     Route: 048
     Dates: start: 20220525, end: 20220602

REACTIONS (6)
  - Hallucination, visual [None]
  - Personality change [None]
  - Therapy cessation [None]
  - Irritability [None]
  - Thinking abnormal [None]
  - Fear [None]
